FAERS Safety Report 4385398-5 (Version None)
Quarter: 2004Q2

REPORT INFORMATION
  Report Type: 
  Country: None (occurrence: None)
  Receive Date: 20040622
  Receipt Date: 20040615
  Transmission Date: 20050107
  Serious: Yes (Death)
  Sender: FDA-Public Use
  Company Number: 2004UW09918

PATIENT
  Age: 47 Year
  Sex: 0
  Weight: 113.3993 kg

DRUGS (1)
  1. SEROQUEL [Suspect]
     Dosage: 13800 MG ONCE PO
     Route: 048

REACTIONS (2)
  - COMPLETED SUICIDE [None]
  - OVERDOSE [None]
